FAERS Safety Report 17848619 (Version 2)
Quarter: 2020Q2

REPORT INFORMATION
  Report Type: Other
  Country: RU (occurrence: RU)
  Receive Date: 20200602
  Receipt Date: 20200609
  Transmission Date: 20200714
  Serious: Yes (Hospitalization)
  Sender: FDA-Public Use
  Company Number: RU-EMD SERONO-9165390

PATIENT
  Age: 63 Year
  Sex: Female

DRUGS (9)
  1. LIXISENATIDE [Suspect]
     Active Substance: LIXISENATIDE
     Dosage: THERAPY START DATE: MAY 2019. DOSE UP TO 30 UNITS
  2. GLICLAZIDE [Suspect]
     Active Substance: GLICLAZIDE
     Dosage: THERAPY START DATE: NOV 2018
  3. GLICLAZIDE [Suspect]
     Active Substance: GLICLAZIDE
     Dates: start: 201009
  4. INSULIN GLARGINE [Suspect]
     Active Substance: INSULIN GLARGINE
     Indication: TYPE 2 DIABETES MELLITUS
     Dosage: 10 UNITS OF THE DRUG IN A YELLOW SYRINGE PEN (10-40)
  5. METFORMIN [Suspect]
     Active Substance: METFORMIN HYDROCHLORIDE
     Indication: TYPE 2 DIABETES MELLITUS
     Dates: start: 200803
  6. EMPAGLIFLOZIN [Suspect]
     Active Substance: EMPAGLIFLOZIN
     Indication: TYPE 2 DIABETES MELLITUS
     Dates: start: 201601
  7. METFORMIN [Suspect]
     Active Substance: METFORMIN HYDROCHLORIDE
     Dates: start: 200811
  8. GLICLAZIDE [Suspect]
     Active Substance: GLICLAZIDE
     Indication: TYPE 2 DIABETES MELLITUS
     Dates: start: 200903
  9. LIXISENATIDE [Suspect]
     Active Substance: LIXISENATIDE
     Indication: TYPE 2 DIABETES MELLITUS
     Dosage: UP TO 22 UNITS

REACTIONS (8)
  - Glycosylated haemoglobin increased [Unknown]
  - Weight decreased [Unknown]
  - Hyperglycaemia [Unknown]
  - Hypoglycaemia [Unknown]
  - Blood glucose increased [Unknown]
  - Nausea [Recovered/Resolved]
  - Decreased appetite [Unknown]
  - Treatment noncompliance [Unknown]

NARRATIVE: CASE EVENT DATE: 2018
